FAERS Safety Report 23289781 (Version 1)
Quarter: 2023Q4

REPORT INFORMATION
  Report Type: Spontaneous
  Country: CN (occurrence: None)
  Receive Date: 20231212
  Receipt Date: 20231212
  Transmission Date: 20240109
  Serious: Yes (Other)
  Sender: FDA-Public Use
  Company Number: 2023A260610

PATIENT
  Age: 15449 Day
  Sex: Female

DRUGS (5)
  1. SYMBICORT [Suspect]
     Active Substance: BUDESONIDE\FORMOTEROL FUMARATE DIHYDRATE
     Indication: Asthma
     Dosage: TWICE A DAY, ONE INHALATION AT A TIME
     Route: 055
     Dates: start: 20231113, end: 20231122
  2. METOPROLOL [Suspect]
     Active Substance: METOPROLOL
     Indication: Tachycardia
     Dosage: UNKNOWN
     Route: 048
     Dates: start: 2019
  3. METOPROLOL [Suspect]
     Active Substance: METOPROLOL
     Indication: Tachycardia
     Dosage: UNKNOWN
     Route: 048
     Dates: start: 202311, end: 20231122
  4. MONTELUKAST SODIUM [Concomitant]
     Active Substance: MONTELUKAST SODIUM
     Indication: Asthma
  5. XIAOJIN WAN [Concomitant]

REACTIONS (12)
  - Adenomyosis [Unknown]
  - Leiomyoma [Unknown]
  - Galactostasis [Recovering/Resolving]
  - Dysgeusia [Recovering/Resolving]
  - Dizziness [Recovering/Resolving]
  - Discomfort [Unknown]
  - Breast mass [Unknown]
  - Cough [Unknown]
  - Breast cyst [Unknown]
  - Urinary tract infection [Recovering/Resolving]
  - Wrong technique in device usage process [Recovered/Resolved]
  - Intentional product misuse [Not Recovered/Not Resolved]

NARRATIVE: CASE EVENT DATE: 20231101
